FAERS Safety Report 7332104-8 (Version None)
Quarter: 2011Q1

REPORT INFORMATION
  Report Type: 
  Country: None (occurrence: None)
  Receive Date: 20110304
  Receipt Date: 20110221
  Transmission Date: 20110831
  Serious: Yes (Hospitalization)
  Sender: FDA-Public Use
  Company Number: IE-B.I. PHARMACEUTICALS,INC./RIDGEFIELD-2010-UK-01152UK

PATIENT
  Sex: Female

DRUGS (5)
  1. PRADAXA [Suspect]
     Indication: HIP ARTHROPLASTY
     Dosage: 220 MG
     Route: 048
     Dates: start: 20101119, end: 20101204
  2. SULFADEINE [Concomitant]
     Indication: ANALGESIC THERAPY
     Dosage: 2 QDS
     Route: 048
     Dates: start: 20101121
  3. SPATONE [Concomitant]
     Indication: ANAEMIA
     Dosage: 1 DAILY
     Route: 048
     Dates: start: 20101121
  4. PRADAXA [Suspect]
     Indication: THROMBOSIS PROPHYLAXIS
  5. QUININE SULPAHATE [Concomitant]
     Dosage: 300 MG
     Route: 048

REACTIONS (5)
  - GAMMA-GLUTAMYLTRANSFERASE INCREASED [None]
  - PRURITUS [None]
  - BLOOD ALKALINE PHOSPHATASE INCREASED [None]
  - MALAISE [None]
  - NAUSEA [None]
